FAERS Safety Report 16850916 (Version 2)
Quarter: 2019Q4

REPORT INFORMATION
  Report Type: Spontaneous
  Country: JP (occurrence: JP)
  Receive Date: 20190925
  Receipt Date: 20191119
  Transmission Date: 20200122
  Serious: Yes (Hospitalization)
  Sender: FDA-Public Use
  Company Number: JP-PFIZER INC-2019405006

PATIENT
  Age: 69 Year
  Sex: Male
  Weight: 48 kg

DRUGS (9)
  1. RIVOTRIL [Concomitant]
     Active Substance: CLONAZEPAM
     Indication: HEREDITARY NEUROPATHIC AMYLOIDOSIS
     Dosage: 0.5 MG, 1X/DAY
     Route: 048
     Dates: start: 20180726
  2. SPIRONOLACTONE. [Concomitant]
     Active Substance: SPIRONOLACTONE
     Indication: CARDIAC FAILURE
     Dosage: 50 MG, 1X/DAY
     Route: 048
  3. BIOFERMIN [LACTOMIN] [Concomitant]
     Indication: ABDOMINAL DISTENSION
     Dosage: 1 G, 3X/DAY
     Route: 048
     Dates: start: 20181004
  4. MILLISTAPE [Concomitant]
     Indication: CARDIAC FAILURE
     Dosage: 5 MG, 2X/DAY
     Route: 061
     Dates: start: 20180831, end: 20191024
  5. VYNDAQEL [Suspect]
     Active Substance: TAFAMIDIS MEGLUMINE
     Indication: HEREDITARY NEUROPATHIC AMYLOIDOSIS
     Dosage: 20 MG (1 CAPSULE), 1X/DAY
     Route: 048
     Dates: start: 20180215, end: 20190809
  6. DELLEGRA [Concomitant]
     Active Substance: FEXOFENADINE HYDROCHLORIDE\PSEUDOEPHEDRINE HYDROCHLORIDE
     Indication: ASTHMA
     Dosage: 2 TABLETS, 2X/DAY
     Route: 048
  7. GOSHAJINKIGAN [Concomitant]
     Active Substance: HERBALS
     Indication: HEREDITARY NEUROPATHIC AMYLOIDOSIS
     Dosage: 2.5 MG, 1X/DAY
     Route: 048
     Dates: start: 20180531
  8. LIXIANA [Concomitant]
     Active Substance: EDOXABAN TOSYLATE
     Indication: ATRIAL FIBRILLATION
     Dosage: 30 MG, 1X/DAY
     Route: 048
     Dates: start: 20180831
  9. VYNDAQEL [Suspect]
     Active Substance: TAFAMIDIS MEGLUMINE
     Indication: CARDIAC AMYLOIDOSIS
     Dosage: 80 MG (4 CAPSULES), 1X/DAY
     Route: 048
     Dates: start: 20190810

REACTIONS (1)
  - Hypoglycaemia [Recovering/Resolving]

NARRATIVE: CASE EVENT DATE: 20190917
